FAERS Safety Report 4573787-5 (Version None)
Quarter: 2005Q1

REPORT INFORMATION
  Report Type: 
  Country: None (occurrence: None)
  Receive Date: 20050203
  Receipt Date: 20050121
  Transmission Date: 20050727
  Serious: Yes (Hospitalization)
  Sender: FDA-Public Use
  Company Number: HQWYE087713AUG03

PATIENT
  Age: 46 Year
  Sex: Female
  Weight: 118.95 kg

DRUGS (4)
  1. PREMPRO [Suspect]
     Dosage: 0.625MG/2.5MG, ORAL
     Route: 048
     Dates: start: 20000801, end: 20020101
  2. ZIAC [Concomitant]
  3. TOPROL-XL [Concomitant]
  4. ASPIRIN [Concomitant]

REACTIONS (12)
  - AORTIC DILATATION [None]
  - CARDIAC DISORDER [None]
  - CHEST PAIN [None]
  - DIASTOLIC DYSFUNCTION [None]
  - DILATATION VENTRICULAR [None]
  - ELECTROCARDIOGRAM ST SEGMENT ELEVATION [None]
  - HYPERTENSION [None]
  - LEFT VENTRICULAR END-DIASTOLIC PRESSURE INCREASED [None]
  - MITRAL VALVE DISEASE [None]
  - MYOCARDIAL ISCHAEMIA [None]
  - RIGHT VENTRICULAR SYSTOLIC PRESSURE INCREASED [None]
  - TRICUSPID VALVE INCOMPETENCE [None]
